FAERS Safety Report 22088712 (Version 1)
Quarter: 2023Q1

REPORT INFORMATION
  Report Type: Spontaneous
  Country: US (occurrence: None)
  Receive Date: 20230310
  Receipt Date: 20230310
  Transmission Date: 20230417
  Serious: No
  Sender: FDA-Public Use
  Company Number: None

PATIENT
  Age: 70 Year
  Sex: Male
  Weight: 78.47 kg

DRUGS (1)
  1. GAMUNEX-C [Suspect]
     Active Substance: HUMAN IMMUNOGLOBULIN G
     Dosage: OTHER STRENGTH : 10% GM;?FREQUENCY : DAILY;?
     Route: 042

REACTIONS (2)
  - Dyspnoea [None]
  - Influenza like illness [None]

NARRATIVE: CASE EVENT DATE: 20230310
